FAERS Safety Report 4704762-5 (Version None)
Quarter: 2005Q2

REPORT INFORMATION
  Report Type: 
  Country: None (occurrence: None)
  Receive Date: 20050630
  Receipt Date: 20050615
  Transmission Date: 20051028
  Serious: Yes (Death)
  Sender: FDA-Public Use
  Company Number: CERZ-10921

PATIENT
  Age: 84 Year
  Sex: Female

DRUGS (1)
  1. CEREZYME [Suspect]
     Indication: GAUCHER'S DISEASE
     Dosage: 2200 UNITS UNK IV
     Route: 042
     Dates: start: 19970611, end: 20050128

REACTIONS (1)
  - DEATH [None]
